FAERS Safety Report 9832912 (Version 1)
Quarter: 2014Q1

REPORT INFORMATION
  Report Type: Spontaneous
  Country: US (occurrence: US)
  Receive Date: 20140121
  Receipt Date: 20140121
  Transmission Date: 20141002
  Serious: No
  Sender: FDA-Public Use
  Company Number: US-B.I. PHARMACEUTICALS,INC./RIDGEFIELD-2014-BI-01792BP

PATIENT
  Age: 48 Year
  Sex: Female
  Weight: 64 kg

DRUGS (9)
  1. SPIRIVA [Suspect]
     Indication: ASTHMA
     Dosage: 18 MCG
     Route: 048
     Dates: start: 2007
  2. NEURONTIN [Concomitant]
     Indication: NERVE INJURY
     Dosage: 200 MG
     Route: 048
  3. CYMBALTA [Concomitant]
     Indication: DEPRESSION
     Dosage: 60 MG
     Route: 048
  4. AMBIEN [Concomitant]
     Indication: BIPOLAR DISORDER
     Dosage: 10 MG
     Route: 048
  5. KLONOPIN [Concomitant]
     Indication: BIPOLAR DISORDER
     Dosage: 2 MG
     Route: 048
  6. CARBATROL [Concomitant]
     Indication: BIPOLAR DISORDER
     Dosage: 300 MG
     Route: 048
  7. SEROQUEL [Concomitant]
     Indication: BIPOLAR DISORDER
     Dosage: 300 MG
     Route: 048
  8. OXYCODONE [Concomitant]
     Indication: PAIN
     Dosage: DOSE PER APPLICATION: 10/325 MG
     Route: 048
  9. ZANAFLEX [Concomitant]
     Indication: PAIN
     Dosage: 12 MG
     Route: 048

REACTIONS (7)
  - Sinusitis [Not Recovered/Not Resolved]
  - Dyspnoea [Not Recovered/Not Resolved]
  - Cough [Not Recovered/Not Resolved]
  - Sinus operation [Not Recovered/Not Resolved]
  - Headache [Not Recovered/Not Resolved]
  - Incorrect route of drug administration [Recovered/Resolved]
  - Off label use [Unknown]
